FAERS Safety Report 20368807 (Version 1)
Quarter: 2022Q1

REPORT INFORMATION
  Report Type: Spontaneous
  Country: TR (occurrence: TR)
  Receive Date: 20220124
  Receipt Date: 20220124
  Transmission Date: 20220423
  Serious: Yes (Other)
  Sender: FDA-Public Use
  Company Number: TR-BAYER-2022A010472

PATIENT

DRUGS (1)
  1. EYLEA [Suspect]
     Active Substance: AFLIBERCEPT
     Indication: Diabetic retinal oedema
     Dosage: 40 MG/ML, TREATED AND FOLLOWED UP FOR 2 YEARS, RECENTLY RECEIVED A INJECTION IN THE LEFT EYE
     Route: 031

REACTIONS (1)
  - Deafness unilateral [Not Recovered/Not Resolved]
